FAERS Safety Report 7341729-5 (Version None)
Quarter: 2011Q1

REPORT INFORMATION
  Report Type: 
  Country: None (occurrence: None)
  Receive Date: 20110309
  Receipt Date: 20110225
  Transmission Date: 20110831
  Serious: Yes (Hospitalization, Other)
  Sender: FDA-Public Use
  Company Number: US-CELGENEUS-163-21880-10120636

PATIENT
  Sex: Male
  Weight: 51.302 kg

DRUGS (18)
  1. REVLIMID [Suspect]
     Indication: MULTIPLE MYELOMA
     Dosage: 25 MILLIGRAM
     Route: 048
     Dates: start: 20100902, end: 20100924
  2. MOM [Concomitant]
     Route: 065
  3. REVLIMID [Suspect]
     Dosage: 25 MILLIGRAM
     Route: 048
     Dates: start: 20110208
  4. DECADRON [Concomitant]
     Dosage: 40 MILLIGRAM
     Route: 065
     Dates: start: 20100902
  5. VICODIN [Concomitant]
     Indication: NECK PAIN
     Route: 065
  6. MULTI-VITAMIN [Concomitant]
     Route: 065
  7. FLOMAX [Concomitant]
     Dosage: .4 MILLIGRAM
     Route: 065
  8. ACYCLOVIR [Concomitant]
     Dosage: 400 MILLIGRAM
     Route: 065
  9. ASPIRIN [Concomitant]
     Route: 065
  10. REVLIMID [Suspect]
     Dosage: 25 MILLIGRAM
     Route: 048
     Dates: start: 20101215
  11. BISACODYL [Concomitant]
     Dosage: 10 MILLIGRAM
     Route: 065
  12. PROSCAR [Concomitant]
     Dosage: 5 MILLIGRAM
     Route: 065
  13. PRILOSEC [Concomitant]
     Dosage: 20 MILLIGRAM
     Route: 065
  14. TYLENOL [Concomitant]
     Dosage: 650 MILLIGRAM
     Route: 065
  15. COMBIVENT [Concomitant]
     Dosage: 2 PUFFS
     Route: 065
  16. ZOMETA [Concomitant]
     Dosage: 4 MILLIGRAM
     Route: 065
  17. CALCIUM WITH VITAMIN D [Concomitant]
     Dosage: 1
     Route: 048
  18. DUONEB [Concomitant]
     Route: 055

REACTIONS (2)
  - WOUND DEHISCENCE [None]
  - WOUND DECOMPOSITION [None]
